FAERS Safety Report 8383311 (Version 4)
Quarter: 2015Q1

REPORT INFORMATION
  Report Type: Report from Study
  Country: US (occurrence: US)
  Receive Date: 20120130
  Receipt Date: 20150220
  Transmission Date: 20150721
  Serious: Yes (Death)
  Sender: FDA-Public Use
  Company Number: US-ROCHE-1033634

PATIENT
  Age: 42 Year
  Sex: Female
  Weight: 88.4 kg

DRUGS (13)
  1. HEPARIN [Concomitant]
     Active Substance: HEPARIN SODIUM
     Route: 065
  2. CARBOPLATIN. [Concomitant]
     Active Substance: CARBOPLATIN
     Route: 042
  3. ZOLEDRONIC ACID [Concomitant]
     Active Substance: ZOLEDRONIC ACID
  4. DARBEPOETIN ALFA [Concomitant]
     Active Substance: DARBEPOETIN ALFA
     Route: 058
  5. AVASTIN [Suspect]
     Active Substance: BEVACIZUMAB
     Indication: BREAST CANCER
     Dosage: LAST DOSE 25-JUN-2008
     Route: 042
     Dates: start: 20080604
  6. LEUPROLIDE [Concomitant]
     Active Substance: LEUPROLIDE
     Route: 030
  7. ALOXI [Concomitant]
     Active Substance: PALONOSETRON HYDROCHLORIDE
     Route: 042
  8. PACLITAXEL. [Concomitant]
     Active Substance: PACLITAXEL
     Route: 042
  9. ZOMETA [Concomitant]
     Active Substance: ZOLEDRONIC ACID
     Route: 042
  10. DIPHENHYDRAMINE [Concomitant]
     Active Substance: DIPHENHYDRAMINE
     Route: 042
  11. DEXAMETHASONE. [Concomitant]
     Active Substance: DEXAMETHASONE
     Route: 048
  12. RANITIDINE [Concomitant]
     Active Substance: RANITIDINE\RANITIDINE HYDROCHLORIDE
     Route: 042
  13. COMPAZINE [Concomitant]
     Active Substance: PROCHLORPERAZINE MALEATE

REACTIONS (3)
  - Anaemia [Unknown]
  - Metastases to bone [Unknown]
  - Breast cancer metastatic [Fatal]

NARRATIVE: CASE EVENT DATE: 20090102
